FAERS Safety Report 9636104 (Version 1)
Quarter: 2013Q4

REPORT INFORMATION
  Report Type: Spontaneous
  Country: FR (occurrence: FR)
  Receive Date: 20131021
  Receipt Date: 20131021
  Transmission Date: 20140711
  Serious: Yes (Hospitalization)
  Sender: FDA-Public Use
  Company Number: FR-UCBSA-100215

PATIENT
  Age: 61 Year
  Sex: Male

DRUGS (3)
  1. KEPPRA [Suspect]
     Dosage: DRUG STRENGTH: 500 MG
     Route: 048
     Dates: start: 20130624, end: 20130712
  2. VALIUM [Suspect]
     Route: 048
     Dates: start: 20130622
  3. URBANYL [Suspect]
     Route: 048
     Dates: start: 20130622, end: 20130711

REACTIONS (3)
  - Gait disturbance [Recovered/Resolved]
  - Hypotonia [Recovered/Resolved]
  - Nystagmus [Recovered/Resolved]
